FAERS Safety Report 11754579 (Version 5)
Quarter: 2016Q2

REPORT INFORMATION
  Report Type: Spontaneous
  Country: JP (occurrence: JP)
  Receive Date: 20151119
  Receipt Date: 20160425
  Transmission Date: 20160815
  Serious: No
  Sender: FDA-Public Use
  Company Number: JP-PFIZER INC-2015396278

PATIENT
  Age: 56 Year
  Sex: Female

DRUGS (2)
  1. LIPITOR [Suspect]
     Active Substance: ATORVASTATIN CALCIUM
     Dosage: 5 MG, 1X/DAY
     Route: 048
     Dates: start: 20151031, end: 201601
  2. LIPITOR [Suspect]
     Active Substance: ATORVASTATIN CALCIUM
     Indication: DYSLIPIDAEMIA
     Dosage: 5 MG, 1X/DAY
     Route: 048
     Dates: start: 20150214, end: 201510

REACTIONS (1)
  - Skin papilloma [Unknown]

NARRATIVE: CASE EVENT DATE: 201509
